FAERS Safety Report 8238651-9 (Version None)
Quarter: 2012Q1

REPORT INFORMATION
  Report Type: 
  Country: None (occurrence: None)
  Receive Date: 20120323
  Receipt Date: 20120308
  Transmission Date: 20120608
  Serious: Yes (Death, Hospitalization)
  Sender: FDA-Public Use
  Company Number: 2010BI010017

PATIENT
  Age: 55 Year
  Sex: Male
  Weight: 65.2 kg

DRUGS (9)
  1. RITUXIMAB (RITUXIMAB) [Suspect]
     Indication: EXTRANODAL MARGINAL ZONE B-CELL LYMPHOMA (MALT TYPE) STAGE III
     Dosage: 250 MG/M2, SINGLE, IV DRIP, 250 MG/M2, SINGLE, IV DRIP
     Route: 041
     Dates: start: 20090819, end: 20090819
  2. RITUXIMAB (RITUXIMAB) [Suspect]
     Indication: EXTRANODAL MARGINAL ZONE B-CELL LYMPHOMA (MALT TYPE) STAGE III
     Dosage: 250 MG/M2, SINGLE, IV DRIP, 250 MG/M2, SINGLE, IV DRIP
     Route: 041
     Dates: start: 20090826, end: 20090826
  3. OTHER ANALGESICS AND ANTIPYRETICS (OTHER ANALGESICS AND ANTIPYRECTICS) [Concomitant]
  4. ANTIHISTAMINES [Concomitant]
  5. ZEVALIN [Suspect]
     Indication: EXTRANODAL MARGINAL ZONE B-CELL LYMPHOMA (MALT TYPE) STAGE III
     Dosage: 130 MBQ, SINGLE, INTRAVENOUS
     Route: 042
     Dates: start: 20090819, end: 20090819
  6. ZEVALIN [Suspect]
     Indication: EXTRANODAL MARGINAL ZONE B-CELL LYMPHOMA (MALT TYPE) STAGE III
     Dosage: 965 MBQ, SINGLE, INTRAVENOUS;
     Route: 042
     Dates: start: 20090826, end: 20090826
  7. OTHER ANALGESICS AND ANTIPYRETICS (OTHER ANALGESICS AND ANTIPYRECTICS) [Concomitant]
  8. ANTIHISTAMINES [Concomitant]
  9. FLUDARA [Suspect]
     Indication: EXTRANODAL MARGINAL ZONE B-CELL LYMPHOMA (MALT TYPE) STAGE III
     Dosage: INTRAVENOUS
     Route: 042
     Dates: start: 20090326, end: 20090605

REACTIONS (3)
  - CYSTITIS HAEMORRHAGIC [None]
  - EXTRANODAL MARGINAL ZONE B-CELL LYMPHOMA (MALT TYPE) RECURRENT [None]
  - ADENOVIRUS INFECTION [None]
